FAERS Safety Report 4821878-3 (Version None)
Quarter: 2005Q4

REPORT INFORMATION
  Report Type: 
  Country: None (occurrence: None)
  Receive Date: 20051103
  Receipt Date: 20051021
  Transmission Date: 20060501
  Serious: Yes (Death, Other)
  Sender: FDA-Public Use
  Company Number: 2005127153

PATIENT
  Age: 87 Year
  Sex: Female

DRUGS (10)
  1. PREDNISONE [Suspect]
     Indication: RHEUMATOID ARTHRITIS
     Dosage: 5 MG (5 MG, 1 IN 1 D), ORAL
     Route: 048
     Dates: start: 19970901, end: 20050820
  2. TIOTROPIUM BROMIDE (TIOTROPIUM BROMIDE) [Suspect]
     Indication: BRONCHITIS CHRONIC
     Dosage: INHALATION
     Route: 055
     Dates: start: 20050819, end: 20050819
  3. RISPERDAL [Suspect]
     Indication: CHARLES BONNET SYNDROME
     Dosage: 0.5 MG (0.5 MG, 1 IN 1 D), ORAL
     Route: 048
     Dates: start: 20050215, end: 20050820
  4. TRANDOLAPRIL [Concomitant]
  5. SENNOSIDES (SENNOSIDE A+B) [Concomitant]
  6. MISOPROSTOL [Concomitant]
  7. LOXOPROFEN SOCIUM (LOXOPROFEN SODIUM) [Concomitant]
  8. QUETIAPINE FUMARATE [Concomitant]
  9. BUCILLAMINE (BUCILLAMINE) [Concomitant]
  10. ZOPICLONE (ZOPICLONE) [Concomitant]

REACTIONS (4)
  - BRONCHITIS CHRONIC [None]
  - CARDIOMEGALY [None]
  - HALLUCINATION, VISUAL [None]
  - SUDDEN DEATH [None]
